FAERS Safety Report 9167937 (Version 1)
Quarter: 2013Q1

REPORT INFORMATION
  Report Type: Spontaneous
  Country: PL (occurrence: None)
  Receive Date: 20130304
  Receipt Date: 20130304
  Transmission Date: 20140127
  Serious: Yes (Hospitalization)
  Sender: FDA-Public Use
  Company Number: 0220585

PATIENT
  Sex: 0

DRUGS (1)
  1. TACHOSIL [Suspect]

REACTIONS (3)
  - Product adhesion issue [None]
  - Drug ineffective [None]
  - Off label use [None]
